FAERS Safety Report 5203547-3 (Version None)
Quarter: 2007Q1

REPORT INFORMATION
  Report Type: 
  Country: None (occurrence: None)
  Receive Date: 20070110
  Receipt Date: 20070108
  Transmission Date: 20070707
  Serious: Yes (Hospitalization)
  Sender: FDA-Public Use
  Company Number: US-GLAXOSMITHKLINE-A0631621A

PATIENT
  Age: 36 Year
  Sex: Male
  Weight: 63.6 kg

DRUGS (5)
  1. COMBIVIR [Suspect]
     Indication: HIV INFECTION
     Route: 048
     Dates: start: 20061208
  2. KALETRA [Concomitant]
  3. FLUCONAZOLE [Concomitant]
  4. SULFA ANTIBIOTIC [Concomitant]
  5. ZITHROMAX [Concomitant]

REACTIONS (2)
  - DYSPEPSIA [None]
  - VOMITING [None]
